FAERS Safety Report 8177400-X (Version None)
Quarter: 2012Q1

REPORT INFORMATION
  Report Type: 
  Country: None (occurrence: None)
  Receive Date: 20120301
  Receipt Date: 20120227
  Transmission Date: 20120608
  Serious: Yes (Other)
  Sender: FDA-Public Use
  Company Number: US-ABBOTT-12P-163-0895363-00

PATIENT
  Sex: Female
  Weight: 46.762 kg

DRUGS (3)
  1. HUMIRA [Suspect]
     Indication: CROHN'S DISEASE
     Route: 058
     Dates: start: 20080829
  2. AZATHIOPRINE [Concomitant]
     Indication: CROHN'S DISEASE
     Dates: start: 20060501, end: 20061127
  3. METHOTREXATE [Concomitant]
     Indication: CROHN'S DISEASE
     Dates: start: 20070313, end: 20071001

REACTIONS (2)
  - THYROID NEOPLASM [None]
  - THYROID CANCER [None]
